FAERS Safety Report 18518526 (Version 1)
Quarter: 2020Q4

REPORT INFORMATION
  Report Type: Spontaneous
  Country: US (occurrence: US)
  Receive Date: 20201118
  Receipt Date: 20201118
  Transmission Date: 20210114
  Serious: No
  Sender: FDA-Public Use
  Company Number: US-ANIPHARMA-2019-US-020629

PATIENT
  Age: 80 Year
  Sex: Female

DRUGS (1)
  1. FLECAINIDE ACETATE TABLETS 100 MG [Suspect]
     Active Substance: FLECAINIDE ACETATE
     Indication: ATRIAL FIBRILLATION
     Dosage: TWICE DAILY
     Route: 048

REACTIONS (1)
  - Urticaria [Unknown]
